FAERS Safety Report 6218623-6 (Version None)
Quarter: 2009Q2

REPORT INFORMATION
  Report Type: 
  Country: None (occurrence: None)
  Receive Date: 20090608
  Receipt Date: 20090608
  Transmission Date: 20091009
  Serious: Yes (Hospitalization, Other)
  Sender: FDA-Public Use
  Company Number: DE-ABBOTT-09P-062-0564706-00

PATIENT
  Sex: Female
  Weight: 75 kg

DRUGS (7)
  1. HUMIRA [Suspect]
     Indication: PSORIATIC ARTHROPATHY
     Dosage: INITIALLY (07 AUG 2008) 80 MG SC THEN 40 MG EOW
     Route: 058
     Dates: start: 20080807
  2. HUMIRA [Suspect]
     Route: 058
     Dates: start: 20080710, end: 20081201
  3. METHOTREXATE [Concomitant]
     Indication: DRUG USE FOR UNKNOWN INDICATION
     Dates: start: 20070901, end: 20080601
  4. LACTULOSE [Concomitant]
     Indication: HEPATIC ENCEPHALOPATHY PROPHYLAXIS
  5. CALCIMAGON [Concomitant]
     Indication: DRUG USE FOR UNKNOWN INDICATION
  6. PANTOPRAZOL [Concomitant]
     Indication: DRUG USE FOR UNKNOWN INDICATION
  7. VITAMIN B DUO [Concomitant]
     Indication: DRUG USE FOR UNKNOWN INDICATION
     Dosage: 1-0-1

REACTIONS (6)
  - ABDOMINAL DISTENSION [None]
  - CHROMATURIA [None]
  - FAECES PALE [None]
  - HEPATITIS [None]
  - NAUSEA [None]
  - TRANSAMINASES INCREASED [None]
